FAERS Safety Report 10495505 (Version 2)
Quarter: 2014Q4

REPORT INFORMATION
  Report Type: Report from Study
  Country: US (occurrence: US)
  Receive Date: 20141003
  Receipt Date: 20141217
  Transmission Date: 20150528
  Serious: Yes (Hospitalization)
  Sender: FDA-Public Use
  Company Number: US-ACTELION-A-US2014-105811

PATIENT
  Age: 62 Year
  Sex: Female

DRUGS (1)
  1. MACITENTAN [Suspect]
     Active Substance: MACITENTAN
     Indication: COR PULMONALE CHRONIC
     Dosage: 10 MG, UNK
     Route: 048
     Dates: start: 20140716

REACTIONS (6)
  - Pruritus [Unknown]
  - Depression [Unknown]
  - Cellulitis [Unknown]
  - Animal scratch [Unknown]
  - Headache [Unknown]
  - Fatigue [Unknown]
